FAERS Safety Report 8355146-2 (Version None)
Quarter: 2012Q2

REPORT INFORMATION
  Report Type: 
  Country: None (occurrence: None)
  Receive Date: 20120511
  Receipt Date: 20120509
  Transmission Date: 20120825
  Serious: Yes (Other)
  Sender: FDA-Public Use
  Company Number: US-PFIZER INC-2012113692

PATIENT
  Sex: Female
  Weight: 83 kg

DRUGS (10)
  1. PAXIL [Concomitant]
     Dosage: UNK
  2. BUSPAR [Concomitant]
     Dosage: UNK
  3. ALBUTEROL [Concomitant]
     Indication: CHRONIC OBSTRUCTIVE PULMONARY DISEASE
     Dosage: UNK,AS NEEDED
  4. LYRICA [Suspect]
     Indication: NERVE INJURY
     Dosage: 150 MG, 3X/DAY
  5. LYRICA [Suspect]
     Indication: NEUROPATHY PERIPHERAL
     Dosage: 75 MG, 3X/DAY
  6. LYRICA [Suspect]
     Dosage: UNK
     Dates: end: 20120101
  7. DUONEB [Concomitant]
     Dosage: UNK
  8. TRAZODONE [Concomitant]
     Dosage: UNK
  9. AMITIZA [Concomitant]
     Indication: CONSTIPATION
     Dosage: UNK
  10. PRILOSEC [Concomitant]
     Dosage: UNK

REACTIONS (8)
  - EYE PAIN [None]
  - ACTIVITIES OF DAILY LIVING IMPAIRED [None]
  - CATARACT [None]
  - PAIN [None]
  - CHOLECYSTECTOMY [None]
  - VAGINAL PROLAPSE [None]
  - URINARY INCONTINENCE [None]
  - CONSTIPATION [None]
